FAERS Safety Report 9186724 (Version 1)
Quarter: 2012Q4

REPORT INFORMATION
  Report Type: 
  Country: GB (occurrence: GB)
  Receive Date: 20121102
  Receipt Date: 20121102
  Transmission Date: 20130627
  Serious: Yes (Other)
  Sender: FDA-Public Use
  Company Number: GB-JNJFOC-20121014655

PATIENT
  Age: 23 Year
  Sex: Female
  Weight: 50 kg

DRUGS (14)
  1. HALOPERIDOL [Suspect]
     Indication: POST-TRAUMATIC STRESS DISORDER
     Route: 048
     Dates: start: 201201, end: 201210
  2. HALOPERIDOL [Suspect]
     Indication: PERSONALITY DISORDER
     Route: 048
     Dates: start: 201201, end: 201210
  3. HALOPERIDOL DECANOATE [Suspect]
     Indication: POST-TRAUMATIC STRESS DISORDER
     Route: 030
     Dates: start: 201204, end: 201210
  4. HALOPERIDOL DECANOATE [Suspect]
     Indication: PERSONALITY DISORDER
     Route: 030
     Dates: start: 201204, end: 201210
  5. PARACETAMOL [Concomitant]
     Route: 065
  6. DIAZEPAM [Concomitant]
     Route: 065
  7. HYOSCINE BUTYLBROMIDE [Concomitant]
     Route: 065
  8. LORAZEPAM [Concomitant]
     Route: 065
  9. MEDROXYPROGESTERONE ACETATE [Concomitant]
     Route: 065
  10. PROCYCLIDINE [Concomitant]
     Route: 065
  11. SALBUTAMOL [Concomitant]
     Route: 065
  12. SERETIDE [Concomitant]
     Route: 065
  13. SODIUM VALPROATE [Concomitant]
     Route: 065
  14. CYCLIZINE [Concomitant]
     Route: 065

REACTIONS (1)
  - Hyperprolactinaemia [Recovering/Resolving]
